FAERS Safety Report 7997781-7 (Version None)
Quarter: 2011Q4

REPORT INFORMATION
  Report Type: 
  Country: None (occurrence: None)
  Receive Date: 20111221
  Receipt Date: 20101201
  Transmission Date: 20120403
  Serious: No
  Sender: FDA-Public Use
  Company Number: US-PFIZER INC-K201001459

PATIENT
  Age: 56 Year
  Sex: Female

DRUGS (2)
  1. CORGARD [Suspect]
     Indication: HYPERTENSION
     Dosage: 20 MG, UNK
     Dates: start: 19950101
  2. CORGARD [Suspect]
     Indication: HEART RATE INCREASED
     Dosage: UNK

REACTIONS (5)
  - VISION BLURRED [None]
  - EYE PAIN [None]
  - DRUG INEFFECTIVE [None]
  - HEADACHE [None]
  - ABNORMAL SENSATION IN EYE [None]
